FAERS Safety Report 10638723 (Version 1)
Quarter: 2014Q4

REPORT INFORMATION
  Report Type: Report from Study
  Country: US (occurrence: US)
  Receive Date: 20141208
  Receipt Date: 20141208
  Transmission Date: 20150529
  Serious: Yes (Life-Threatening, Hospitalization)
  Sender: FDA-Public Use
  Company Number: US-SA-2014SA169038

PATIENT
  Age: 75 Year
  Sex: Male
  Weight: 69.7 kg

DRUGS (4)
  1. BLINDED THERAPY [Suspect]
     Active Substance: INVESTIGATIONAL PRODUCT
     Dosage: 400 MG QD STRTING ON DAY 1
     Route: 065
     Dates: start: 20140812, end: 20141101
  2. ELOXATIN [Suspect]
     Active Substance: OXALIPLATIN
     Indication: ADENOCARCINOMA OF COLON
     Dosage: OVER 2 HOURS ON DAY 1
     Route: 042
     Dates: start: 20140812, end: 20141021
  3. 5-FU [Suspect]
     Active Substance: FLUOROURACIL
     Dosage: 400 MG/M2 ON DAY 1 FOLLOWED BY 2400 MG/M2 OVER 46-48 HOURS ON DAY 1
     Dates: start: 20140812, end: 20141023
  4. LEUCOVORIN CALCIUM. [Suspect]
     Active Substance: LEUCOVORIN CALCIUM
     Dosage: OVER 2 HOURS ON DAY 1
     Route: 042
     Dates: start: 20140812, end: 20141021

REACTIONS (1)
  - Myocardial infarction [Recovered/Resolved]

NARRATIVE: CASE EVENT DATE: 20141102
